FAERS Safety Report 9995620 (Version 1)
Quarter: 2014Q1

REPORT INFORMATION
  Report Type: Spontaneous
  Country: US (occurrence: US)
  Receive Date: 20140311
  Receipt Date: 20140311
  Transmission Date: 20141002
  Serious: Yes (Other)
  Sender: FDA-Public Use
  Company Number: US-PFIZER INC-2014046597

PATIENT
  Sex: Female

DRUGS (1)
  1. MOTRIN IB [Suspect]
     Route: 048

REACTIONS (2)
  - Gastric ulcer [Unknown]
  - Therapeutic response increased [Unknown]
